FAERS Safety Report 7649497-4 (Version None)
Quarter: 2011Q3

REPORT INFORMATION
  Report Type: 
  Country: None (occurrence: None)
  Receive Date: 20110802
  Receipt Date: 20110719
  Transmission Date: 20111222
  Serious: Yes (Other)
  Sender: FDA-Public Use
  Company Number: US-BAYER-201032136NA

PATIENT
  Age: 22 Year
  Sex: Female
  Weight: 82.086 kg

DRUGS (3)
  1. TYLENOL-500 [Concomitant]
  2. YAZ [Suspect]
     Indication: MENSTRUATION IRREGULAR
     Dosage: UNK
     Route: 048
     Dates: start: 20080318, end: 20080601
  3. SPRINTEC [Concomitant]
     Dosage: UNK
     Dates: start: 20080601, end: 20080811

REACTIONS (4)
  - DEEP VEIN THROMBOSIS [None]
  - ERYTHEMA [None]
  - OEDEMA PERIPHERAL [None]
  - PAIN IN EXTREMITY [None]
